FAERS Safety Report 17769601 (Version 1)
Quarter: 2020Q2

REPORT INFORMATION
  Report Type: Spontaneous
  Country: ES (occurrence: ES)
  Receive Date: 20200512
  Receipt Date: 20200512
  Transmission Date: 20200714
  Serious: Yes (Hospitalization, Other)
  Sender: FDA-Public Use
  Company Number: ES-ACCORD-180918

PATIENT
  Age: 53 Year
  Sex: Male

DRUGS (4)
  1. GEMCITABINE. [Concomitant]
     Active Substance: GEMCITABINE
     Indication: NASOPHARYNGEAL CANCER STAGE III
     Dates: start: 20180615, end: 201806
  2. CARBOPLATIN. [Suspect]
     Active Substance: CARBOPLATIN
     Indication: NASOPHARYNGEAL CANCER STAGE II
     Dates: start: 20180615, end: 201806
  3. GEMCITABINE. [Concomitant]
     Active Substance: GEMCITABINE
     Indication: EPSTEIN-BARR VIRUS INFECTION
     Dates: start: 20180615, end: 201806
  4. CARBOPLATIN. [Suspect]
     Active Substance: CARBOPLATIN
     Indication: EPSTEIN-BARR VIRUS INFECTION
     Dates: start: 20180615, end: 201806

REACTIONS (4)
  - Mucosal inflammation [Recovered/Resolved]
  - Off label use [Unknown]
  - Pancytopenia [Recovered/Resolved]
  - Toxicity to various agents [Recovered/Resolved]

NARRATIVE: CASE EVENT DATE: 201806
